FAERS Safety Report 4658138-X (Version None)
Quarter: 2005Q2

REPORT INFORMATION
  Report Type: 
  Country: None (occurrence: None)
  Receive Date: 20050509
  Receipt Date: 20050425
  Transmission Date: 20051028
  Serious: Yes (Other)
  Sender: FDA-Public Use
  Company Number: 2004093596

PATIENT
  Age: 51 Year
  Sex: Male

DRUGS (10)
  1. VIAGRA [Suspect]
     Indication: ILL-DEFINED DISORDER
  2. ERYTHROPOIETIN (ERYTHROPOIETIN) [Suspect]
     Indication: ILL-DEFINED DISORDER
     Dosage: 40000 I.U. (40000 I.U., 1 IN 1 WK), SUBCUTANEOUS
     Route: 058
  3. PEGINTERFERON ALFA-2B (PEGINTERFERON ALFA-2B) [Suspect]
     Indication: HEPATITIS C
     Dosage: SUBCUTANEOUS
     Route: 058
     Dates: start: 20000801, end: 20040226
  4. RIBAVIRIN [Suspect]
     Indication: HEPATITIS C
     Dosage: ORAL
     Route: 048
     Dates: start: 20000801, end: 20040226
  5. METOCLOPRAMIDE [Concomitant]
  6. CITALOPRAM HYDROBROMIDE [Concomitant]
  7. METHYLCELLULOSE (METHYLCELLULOSE) [Concomitant]
  8. MULTIVITAMINS (ASCORBIC ACID, ERGOCALCIFEROL, FOLIC ACID, NICOTINAMIDE [Concomitant]
  9. HYDROCHLOROTHIAZIDE [Concomitant]
  10. NIFEDIPINE [Concomitant]

REACTIONS (12)
  - ANAEMIA [None]
  - ANTI-ERYTHROPOIETIN ANTIBODY POSITIVE [None]
  - APLASIA PURE RED CELL [None]
  - CHRONIC HEPATITIS [None]
  - CONDITION AGGRAVATED [None]
  - DEPRESSION [None]
  - HYPERTENSION [None]
  - INJECTION SITE SWELLING [None]
  - LABORATORY TEST ABNORMAL [None]
  - NEUTRALISING ANTIBODIES [None]
  - SYNCOPE [None]
  - THERAPEUTIC RESPONSE DECREASED [None]
